FAERS Safety Report 13857922 (Version 1)
Quarter: 2017Q3

REPORT INFORMATION
  Report Type: Spontaneous
  Country: ES (occurrence: ES)
  Receive Date: 20170811
  Receipt Date: 20170811
  Transmission Date: 20171127
  Serious: Yes (Life-Threatening, Hospitalization)
  Sender: FDA-Public Use
  Company Number: ES-AUROBINDO-AUR-APL-2013-10608

PATIENT

DRUGS (1)
  1. METFORMINA AUROBINDO COMPRIMIDOS RECUBIERTOS CON PELICULA 850MG [Suspect]
     Active Substance: METFORMIN HYDROCHLORIDE
     Indication: TYPE 2 DIABETES MELLITUS
     Dosage: 850 MG,ONCE A DAY,
     Route: 065

REACTIONS (3)
  - Labelled drug-disease interaction medication error [Unknown]
  - Chronic kidney disease [Recovered/Resolved]
  - Lactic acidosis [Recovered/Resolved]
